FAERS Safety Report 13720301 (Version 1)
Quarter: 2017Q3

REPORT INFORMATION
  Report Type: Spontaneous
  Country: FR (occurrence: FR)
  Receive Date: 20170706
  Receipt Date: 20170706
  Transmission Date: 20171127
  Serious: Yes (Hospitalization)
  Sender: FDA-Public Use
  Company Number: FR-CONCORDIA PHARMACEUTICALS INC.-GSH201707-003889

PATIENT
  Age: 85 Year
  Sex: Male

DRUGS (16)
  1. MIANSERIN HYDROCHLORIDE [Concomitant]
     Active Substance: MIANSERIN HYDROCHLORIDE
  2. SERESTA [Concomitant]
     Active Substance: OXAZEPAM
  3. TEGRETOL [Concomitant]
     Active Substance: CARBAMAZEPINE
  4. IMOVANE [Concomitant]
     Active Substance: ZOPICLONE
  5. ALFUZOSIN EXTENDED-RELEASE TABLET 10 MG [Suspect]
     Active Substance: ALFUZOSIN
     Indication: PROSTATE CANCER
     Route: 048
     Dates: end: 20170331
  6. TAHOR [Concomitant]
     Active Substance: ATORVASTATIN CALCIUM
  7. XANAX [Concomitant]
     Active Substance: ALPRAZOLAM
  8. KARDEGIC [Concomitant]
     Active Substance: ASPIRIN LYSINE
  9. PARACETAMOL [Concomitant]
     Active Substance: ACETAMINOPHEN
  10. HUMALOG [Concomitant]
     Active Substance: INSULIN LISPRO
  11. ENALAPRIL MALEATE. [Concomitant]
     Active Substance: ENALAPRIL MALEATE
  12. AMLOR [Concomitant]
     Active Substance: AMLODIPINE BESYLATE
  13. AUGMENTIN [Concomitant]
     Active Substance: AMOXICILLIN\CLAVULANATE POTASSIUM
     Dates: end: 20170412
  14. CALCIPARINE [Concomitant]
     Active Substance: HEPARIN CALCIUM
  15. VITABACT [Concomitant]
     Active Substance: PICLOXYDINE DIHYDROCHLORIDE
     Dates: end: 20170401
  16. MOVICOL [Concomitant]
     Active Substance: POLYETHYLENE GLYCOL 3350\POTASSIUM CHLORIDE\SODIUM BICARBONATE\SODIUM CHLORIDE

REACTIONS (2)
  - Hypotension [Recovered/Resolved]
  - Malaise [Recovered/Resolved]

NARRATIVE: CASE EVENT DATE: 20170328
